FAERS Safety Report 17295593 (Version 2)
Quarter: 2020Q1

REPORT INFORMATION
  Report Type: Spontaneous
  Country: US (occurrence: US)
  Receive Date: 20200121
  Receipt Date: 20200212
  Transmission Date: 20200409
  Serious: Yes (Life-Threatening, Hospitalization)
  Sender: FDA-Public Use
  Company Number: US-TEVA-2020-US-1172381

PATIENT
  Age: 63 Year
  Sex: Male

DRUGS (4)
  1. METFORMIN [Suspect]
     Active Substance: METFORMIN HYDROCHLORIDE
     Dosage: 2 GRAM DAILY;
     Route: 065
  2. HYDROCHLOROTHIAZIDE. [Concomitant]
     Active Substance: HYDROCHLOROTHIAZIDE
     Route: 065
  3. LOSARTAN. [Concomitant]
     Active Substance: LOSARTAN
     Route: 065
  4. INSULIN-GLARGINE [Concomitant]
     Active Substance: INSULIN NOS
     Route: 065

REACTIONS (5)
  - Leukocytosis [Unknown]
  - Respiratory distress [Unknown]
  - Lactic acidosis [Recovering/Resolving]
  - Vomiting [Unknown]
  - Acute kidney injury [Recovering/Resolving]
